FAERS Safety Report 9129939 (Version 2)
Quarter: 2013Q1

REPORT INFORMATION
  Report Type: Spontaneous
  Country: CA (occurrence: CA)
  Receive Date: 20130228
  Receipt Date: 20130306
  Transmission Date: 20140127
  Serious: Yes (Death)
  Sender: FDA-Public Use
  Company Number: CA-PFIZER INC-2013070467

PATIENT
  Age: 27 Year
  Sex: Female
  Weight: 57 kg

DRUGS (3)
  1. XALKORI [Suspect]
     Indication: LUNG NEOPLASM MALIGNANT
     Dosage: 250 MG, 2X/DAY
     Dates: start: 20121027
  2. ONDANSETRON [Concomitant]
     Indication: NAUSEA
     Dosage: 8 MG, 2X/DAY
     Dates: start: 201210
  3. LOSEC [Concomitant]
     Indication: REFLUX GASTRITIS
     Dosage: 40 MG, 1X/DAY
     Dates: start: 20120110, end: 20120124

REACTIONS (2)
  - Disease progression [Fatal]
  - Lung neoplasm malignant [Fatal]
